FAERS Safety Report 5596708-5 (Version None)
Quarter: 2008Q1

REPORT INFORMATION
  Report Type: 
  Country: None (occurrence: None)
  Receive Date: 20080118
  Receipt Date: 20080108
  Transmission Date: 20080703
  Serious: Yes (Other)
  Sender: FDA-Public Use
  Company Number: US-PFIZER INC-2008002440

PATIENT
  Sex: Female
  Weight: 48.1 kg

DRUGS (2)
  1. LYRICA [Suspect]
     Indication: NEUROPATHY PERIPHERAL
  2. CYMBALTA [Concomitant]

REACTIONS (7)
  - ELECTROMYOGRAM ABNORMAL [None]
  - OVARIAN ENLARGEMENT [None]
  - PAIN [None]
  - TOOTH FRACTURE [None]
  - TOOTH REPAIR [None]
  - TOOTHACHE [None]
  - VAGINAL NEOPLASM [None]
